FAERS Safety Report 6696549-1 (Version None)
Quarter: 2010Q2

REPORT INFORMATION
  Report Type: 
  Country: None (occurrence: None)
  Receive Date: 20100422
  Receipt Date: 20100409
  Transmission Date: 20101027
  Serious: Yes (Hospitalization, Other)
  Sender: FDA-Public Use
  Company Number: 2010-1171

PATIENT
  Age: 60 Year
  Sex: Male

DRUGS (1)
  1. DYSPORT [Suspect]
     Indication: MUSCLE SPASTICITY
     Dosage: 1500 UNITS (1500 UNITS, SINGLE)
     Route: 030
     Dates: start: 20100308, end: 20100308

REACTIONS (9)
  - ASPIRATION [None]
  - DYSPHAGIA [None]
  - DYSPNOEA [None]
  - EYELID PTOSIS [None]
  - FATIGUE [None]
  - MOVEMENT DISORDER [None]
  - MUSCULAR WEAKNESS [None]
  - NO THERAPEUTIC RESPONSE [None]
  - SPEECH DISORDER [None]
